FAERS Safety Report 9738259 (Version 1)
Quarter: 2013Q4

REPORT INFORMATION
  Report Type: Spontaneous
  Country: US (occurrence: US)
  Receive Date: 20131208
  Receipt Date: 20131208
  Transmission Date: 20140711
  Serious: No
  Sender: FDA-Public Use
  Company Number: -SAAVPROD-RENA-1001684

PATIENT
  Age: 46 Year
  Sex: Male

DRUGS (1)
  1. SEVELAMER CARBONATE [Suspect]
     Indication: RENAL FAILURE CHRONIC
     Dosage: 2.4 G, QD
     Route: 065

REACTIONS (4)
  - Anger [Unknown]
  - Vision blurred [Unknown]
  - Dysphonia [Unknown]
  - Incorrect dose administered [Unknown]
